FAERS Safety Report 15692746 (Version 2)
Quarter: 2019Q1

REPORT INFORMATION
  Report Type: Spontaneous
  Country: JP (occurrence: JP)
  Receive Date: 20181206
  Receipt Date: 20190102
  Transmission Date: 20190417
  Serious: Yes (Death)
  Sender: FDA-Public Use
  Company Number: JP-ROCHE-2225047

PATIENT
  Age: 85 Year
  Sex: Female

DRUGS (2)
  1. ACTEMRA [Suspect]
     Active Substance: TOCILIZUMAB
     Dosage: DOSE INTERVAL UNCERTAINTY
     Route: 041
     Dates: start: 20181116
  2. ACTEMRA [Suspect]
     Active Substance: TOCILIZUMAB
     Indication: RHEUMATOID ARTHRITIS
     Dosage: DOSE INTERVAL UNCERTAINTY
     Route: 041
     Dates: start: 201510, end: 201612

REACTIONS (6)
  - Intestinal obstruction [Fatal]
  - Anaemia [Unknown]
  - Nausea [Recovering/Resolving]
  - Dyspnoea [Fatal]
  - Gastric ulcer [Fatal]
  - Rash [Unknown]

NARRATIVE: CASE EVENT DATE: 20181125
